FAERS Safety Report 11852301 (Version 1)
Quarter: 2015Q4

REPORT INFORMATION
  Report Type: Spontaneous
  Country: US (occurrence: US)
  Receive Date: 20151218
  Receipt Date: 20151218
  Transmission Date: 20160305
  Serious: No
  Sender: FDA-Public Use
  Company Number: US-GLAXOSMITHKLINE-US2015GSK175055

PATIENT
  Age: 68 Year
  Sex: Female
  Weight: 85.26 kg

DRUGS (3)
  1. CEFTIN [Suspect]
     Active Substance: CEFUROXIME AXETIL
     Indication: SINUSITIS
     Dosage: UNK
     Route: 048
     Dates: start: 201501, end: 201501
  2. SYNTHROID [Suspect]
     Active Substance: LEVOTHYROXINE SODIUM
     Indication: HYPOTHYROIDISM
     Dosage: 75 ?G, 1D
     Route: 048
     Dates: start: 1997, end: 201501
  3. SYNTHROID [Suspect]
     Active Substance: LEVOTHYROXINE SODIUM
     Dosage: 88 ?G, 1D
     Route: 048
     Dates: start: 201501

REACTIONS (5)
  - Pruritus [Unknown]
  - Blood thyroid stimulating hormone increased [Unknown]
  - Rash [Unknown]
  - Sinusitis [Unknown]
  - Hypersensitivity [Unknown]

NARRATIVE: CASE EVENT DATE: 201501
